FAERS Safety Report 7819316-1 (Version None)
Quarter: 2011Q4

REPORT INFORMATION
  Report Type: 
  Country: None (occurrence: None)
  Receive Date: 20111018
  Receipt Date: 20101027
  Transmission Date: 20120403
  Serious: No
  Sender: FDA-Public Use
  Company Number: US-ASTRAZENECA-2010SE50979

PATIENT
  Age: 43 Year
  Sex: Female

DRUGS (3)
  1. PROVENTIL-HFA [Concomitant]
     Indication: ASTHMA
  2. SYMBICORT [Suspect]
     Indication: ASTHMA
     Dosage: 320 MCG BID
     Route: 055
     Dates: start: 20101025
  3. SINGULAIR [Concomitant]
     Indication: ASTHMA

REACTIONS (2)
  - COUGH [None]
  - CHOKING [None]
